FAERS Safety Report 5803395-7 (Version None)
Quarter: 2008Q3

REPORT INFORMATION
  Report Type: 
  Country: None (occurrence: None)
  Receive Date: 20080708
  Receipt Date: 20080703
  Transmission Date: 20090109
  Serious: Yes (Other)
  Sender: FDA-Public Use
  Company Number: US-BAYER-200811196BCC

PATIENT
  Age: 42 Year
  Sex: Male
  Weight: 79 kg

DRUGS (1)
  1. BAYER EXTRA STRENGTH ASPIRIN [Suspect]
     Indication: PAIN
     Dosage: TOTAL DAILY DOSE: 2500 MG  UNIT DOSE: 500 MG
     Route: 048
     Dates: start: 20080325

REACTIONS (1)
  - DEAFNESS BILATERAL [None]
